FAERS Safety Report 23969142 (Version 1)
Quarter: 2024Q2

REPORT INFORMATION
  Report Type: Spontaneous
  Country: CN (occurrence: CN)
  Receive Date: 20240612
  Receipt Date: 20240612
  Transmission Date: 20240716
  Serious: Yes (Other)
  Sender: FDA-Public Use
  Company Number: CN-009507513-2406CHN002865

PATIENT
  Age: 56 Year
  Sex: Male
  Weight: 60 kg

DRUGS (4)
  1. CILASTATIN SODIUM\IMIPENEM [Suspect]
     Active Substance: CILASTATIN SODIUM\IMIPENEM
     Indication: Pneumonia
     Dosage: 1G Q12H; FORMULATION: LYOPHILIZED POWDER
     Route: 041
     Dates: start: 20240529, end: 20240530
  2. CILASTATIN SODIUM\IMIPENEM [Suspect]
     Active Substance: CILASTATIN SODIUM\IMIPENEM
     Dosage: 1G Q8H; FORMULATION: INJECTION
     Route: 041
     Dates: start: 20240530, end: 20240602
  3. SODIUM CHLORIDE [Concomitant]
     Active Substance: SODIUM CHLORIDE
     Indication: Vehicle solution use
     Dosage: 50 ML Q12H
     Route: 041
     Dates: start: 20240529, end: 20240530
  4. SODIUM CHLORIDE [Concomitant]
     Active Substance: SODIUM CHLORIDE
     Dosage: 50 ML Q8H
     Dates: start: 20240530, end: 20240602

REACTIONS (3)
  - Delirium [Recovering/Resolving]
  - Restlessness [Recovering/Resolving]
  - Incorrect dosage administered [Unknown]

NARRATIVE: CASE EVENT DATE: 20240602
